FAERS Safety Report 14545702 (Version 4)
Quarter: 2020Q1

REPORT INFORMATION
  Report Type: Report from Study
  Country: CA (occurrence: CA)
  Receive Date: 20180219
  Receipt Date: 20200319
  Transmission Date: 20200409
  Serious: Yes (Other)
  Sender: FDA-Public Use
  Company Number: CA-ROCHE-1715783

PATIENT
  Age: 40 Year
  Sex: Female
  Weight: 78.09 kg

DRUGS (20)
  1. RITUXAN [Suspect]
     Active Substance: RITUXIMAB
     Route: 042
     Dates: start: 20180927
  2. PREDNISONE. [Suspect]
     Active Substance: PREDNISONE
     Indication: PRODUCT USED FOR UNKNOWN INDICATION
     Route: 065
  3. ACETAMINOPHEN. [Concomitant]
     Active Substance: ACETAMINOPHEN
     Route: 048
     Dates: start: 20170530
  4. RITUXAN [Suspect]
     Active Substance: RITUXIMAB
     Route: 042
     Dates: start: 20160825
  5. PLAQUENIL [Suspect]
     Active Substance: HYDROXYCHLOROQUINE SULFATE
     Indication: PRODUCT USED FOR UNKNOWN INDICATION
     Route: 065
  6. AZATHIOPRINE. [Suspect]
     Active Substance: AZATHIOPRINE
     Indication: PRODUCT USED FOR UNKNOWN INDICATION
     Route: 065
  7. ALENDRONATE [Concomitant]
     Active Substance: ALENDRONATE SODIUM
  8. VITAMIN D3 [Concomitant]
     Active Substance: CHOLECALCIFEROL
  9. METHYLPREDNISOLONE. [Concomitant]
     Active Substance: METHYLPREDNISOLONE
     Route: 042
     Dates: start: 20150831
  10. METHYLPREDNISOLONE. [Concomitant]
     Active Substance: METHYLPREDNISOLONE
     Route: 042
     Dates: start: 20170530
  11. DIPHENHYDRAMINE HCL [Concomitant]
     Active Substance: DIPHENHYDRAMINE HYDROCHLORIDE
     Route: 048
     Dates: start: 20170530
  12. RITUXAN [Suspect]
     Active Substance: RITUXIMAB
     Indication: MICROSCOPIC POLYANGIITIS
     Dosage: LAST DOSE: 21/SEP/2015, MOST RECENT DOSE ON 06/JUN/2017 (683 MG)
     Route: 042
     Dates: start: 20150831
  13. RITUXAN [Suspect]
     Active Substance: RITUXIMAB
     Route: 042
     Dates: start: 20170523
  14. ACETAMINOPHEN. [Concomitant]
     Active Substance: ACETAMINOPHEN
     Indication: PREMEDICATION
     Route: 048
     Dates: start: 20150831
  15. FOLIC ACID. [Concomitant]
     Active Substance: FOLIC ACID
  16. ATOVAQUONE. [Concomitant]
     Active Substance: ATOVAQUONE
     Indication: PROPHYLAXIS
  17. METHOTREXATE. [Concomitant]
     Active Substance: METHOTREXATE
  18. DIPHENHYDRAMINE HCL [Concomitant]
     Active Substance: DIPHENHYDRAMINE HYDROCHLORIDE
     Indication: PREMEDICATION
     Route: 048
     Dates: start: 20150831
  19. RITUXAN [Suspect]
     Active Substance: RITUXIMAB
     Dosage: LAST DOSE: 21/SEP/2015
     Route: 042
     Dates: start: 20160324
  20. RITUXAN [Suspect]
     Active Substance: RITUXIMAB
     Route: 042
     Dates: start: 20180220

REACTIONS (25)
  - Infusion site pain [Recovered/Resolved]
  - Influenza like illness [Recovered/Resolved]
  - Blood pressure fluctuation [Unknown]
  - Abdominal pain [Unknown]
  - Heart rate increased [Unknown]
  - Pruritus [Unknown]
  - Weight increased [Unknown]
  - Infusion related reaction [Unknown]
  - Epistaxis [Unknown]
  - Decreased appetite [Unknown]
  - Blood pressure increased [Unknown]
  - Sensation of foreign body [Unknown]
  - Nausea [Unknown]
  - Blood pressure diastolic increased [Unknown]
  - Cough [Unknown]
  - Blood pressure increased [Unknown]
  - Blood pressure increased [Unknown]
  - Vomiting [Unknown]
  - Platelet count decreased [Unknown]
  - Medication error [Unknown]
  - Blood pressure diastolic increased [Unknown]
  - Pyrexia [Unknown]
  - Pain [Unknown]
  - Abdominal pain upper [Unknown]
  - Headache [Not Recovered/Not Resolved]

NARRATIVE: CASE EVENT DATE: 2016
